FAERS Safety Report 9382930 (Version 1)
Quarter: 2013Q3

REPORT INFORMATION
  Report Type: Spontaneous
  Country: IT (occurrence: IT)
  Receive Date: 20130703
  Receipt Date: 20130703
  Transmission Date: 20140515
  Serious: Yes (Other)
  Sender: FDA-Public Use
  Company Number: IT-ABBOTT-13P-083-1111693-00

PATIENT
  Age: 40 Year
  Sex: Female

DRUGS (1)
  1. HUMIRA [Suspect]
     Indication: CROHN^S DISEASE
     Dosage: CYCLIC
     Route: 058
     Dates: start: 20130208, end: 20130515

REACTIONS (2)
  - Drug eruption [Recovering/Resolving]
  - Lupus-like syndrome [Unknown]
